FAERS Safety Report 5102637-3 (Version None)
Quarter: 2006Q3

REPORT INFORMATION
  Report Type: 
  Country: None (occurrence: None)
  Receive Date: 20060912
  Receipt Date: 20060818
  Transmission Date: 20061208
  Serious: Yes (Death)
  Sender: FDA-Public Use
  Company Number: US-ROCHE-460308

PATIENT
  Age: 66 Year
  Sex: Male
  Weight: 78.5 kg

DRUGS (1)
  1. XELODA [Suspect]
     Route: 048
     Dates: start: 20060608, end: 20060620

REACTIONS (2)
  - HYPOTENSION [None]
  - SEPSIS [None]
